FAERS Safety Report 6787462-X (Version None)
Quarter: 2010Q2

REPORT INFORMATION
  Report Type: 
  Country: None (occurrence: None)
  Receive Date: 20100623
  Receipt Date: 20070625
  Transmission Date: 20101027
  Serious: No
  Sender: FDA-Public Use
  Company Number: US-PFIZER INC-2007021475

PATIENT

DRUGS (1)
  1. SU-011,248 [Suspect]
     Route: 048

REACTIONS (1)
  - HYPERSENSITIVITY [None]
